FAERS Safety Report 25299342 (Version 1)
Quarter: 2025Q2

REPORT INFORMATION
  Report Type: Spontaneous
  Country: US (occurrence: US)
  Receive Date: 20250512
  Receipt Date: 20250512
  Transmission Date: 20250717
  Serious: No
  Sender: AUROBINDO
  Company Number: US-AUROBINDO-AUR-APL-2024-026063

PATIENT
  Age: 64 Year
  Sex: Female
  Weight: 62.59 kg

DRUGS (4)
  1. QUETIAPINE FUMARATE [Suspect]
     Active Substance: QUETIAPINE FUMARATE
     Indication: Sleep disorder
     Dosage: 50 MILLIGRAM, TWO TIMES A DAY ( AT NIGHT, SOMETIMES THREE TIMES A DAY)
     Route: 048
     Dates: start: 20240513
  2. ENTYVIO [Concomitant]
     Active Substance: VEDOLIZUMAB
     Indication: Colitis ulcerative
     Route: 065
  3. LIPITOR [Concomitant]
     Active Substance: ATORVASTATIN CALCIUM
     Indication: Blood cholesterol
     Route: 065
  4. TRICOR [Concomitant]
     Active Substance: FENOFIBRATE
     Indication: Blood triglycerides
     Route: 065

REACTIONS (2)
  - Feeling hot [Unknown]
  - Paraesthesia [Unknown]
